FAERS Safety Report 4662569-1 (Version None)
Quarter: 2005Q2

REPORT INFORMATION
  Report Type: 
  Country: None (occurrence: None)
  Receive Date: 20050513
  Receipt Date: 20050513
  Transmission Date: 20051028
  Serious: Yes (Life-Threatening, Hospitalization)
  Sender: FDA-Public Use
  Company Number: None

PATIENT
  Age: 30 Year
  Sex: Male
  Weight: 140.1615 kg

DRUGS (9)
  1. ZIPRASIDONE  40MG PFIZER [Suspect]
     Indication: SCHIZOAFFECTIVE DISORDER
     Dosage: 40MG  HS ORAL
     Route: 048
     Dates: start: 20050425, end: 20050425
  2. DIVALPROEX SODIUM [Concomitant]
  3. LITHIUM [Concomitant]
  4. LANSOPRAZOLE [Concomitant]
  5. CLONIDINE [Concomitant]
  6. GABAPENTIN [Concomitant]
  7. LORAZEPAM [Concomitant]
  8. IBUPROFEN [Concomitant]
  9. ALUMINUM-MAGNESIUM HYDROXIDE/SIMETHICONE [Concomitant]

REACTIONS (1)
  - ACUTE MYOCARDIAL INFARCTION [None]
